FAERS Safety Report 7967240-6 (Version None)
Quarter: 2011Q4

REPORT INFORMATION
  Report Type: 
  Country: None (occurrence: None)
  Receive Date: 20111209
  Receipt Date: 20111208
  Transmission Date: 20120403
  Serious: Yes (Disabling)
  Sender: FDA-Public Use
  Company Number: CZ-BRISTOL-MYERS SQUIBB COMPANY-14784516

PATIENT
  Age: 58 Year
  Sex: Male
  Weight: 71 kg

DRUGS (3)
  1. XELODA [Suspect]
     Indication: GASTROOESOPHAGEAL CANCER
     Dosage: TAKEN ON DAY 1-15 TABS, RECENT INFUSION 08SEP09
     Route: 048
     Dates: start: 20090523
  2. CETUXIMAB [Suspect]
     Indication: GASTROOESOPHAGEAL CANCER
     Dosage: STRENGTH: 5MG/ML FIRST INF-15SEP09
     Route: 042
     Dates: start: 20090522, end: 20090522
  3. CISPLATIN [Suspect]
     Indication: GASTROOESOPHAGEAL CANCER
     Dosage: TAKEN ON DAY1 OF CYC, RECENT INFU ON 25AUG09
     Route: 042
     Dates: start: 20090523

REACTIONS (1)
  - DEEP VEIN THROMBOSIS [None]
